FAERS Safety Report 20096941 (Version 1)
Quarter: 2021Q4

REPORT INFORMATION
  Report Type: Other
  Country: NL (occurrence: None)
  Receive Date: 20211122
  Receipt Date: 20211122
  Transmission Date: 20220303
  Serious: Yes (Other)
  Sender: FDA-Public Use
  Company Number: NL-ROCHE-2961731

PATIENT

DRUGS (10)
  1. DIAZEPAM [Suspect]
     Active Substance: DIAZEPAM
     Indication: Dementia
     Route: 065
  2. FUROSEMIDE [Suspect]
     Active Substance: FUROSEMIDE
     Indication: Dementia
     Route: 065
  3. METOPROLOL [Suspect]
     Active Substance: METOPROLOL
     Indication: Dementia
     Route: 065
  4. DIGOXIN [Suspect]
     Active Substance: DIGOXIN
     Indication: Dementia
     Route: 065
  5. ATENOLOL [Suspect]
     Active Substance: ATENOLOL
     Indication: Dementia
     Route: 065
  6. WARFARIN [Suspect]
     Active Substance: WARFARIN
     Indication: Dementia
     Route: 065
  7. MORPHINE [Suspect]
     Active Substance: MORPHINE
     Indication: Dementia
     Route: 065
  8. FENTANYL [Suspect]
     Active Substance: FENTANYL
     Indication: Dementia
     Route: 065
  9. PREDNISONE [Suspect]
     Active Substance: PREDNISONE
     Indication: Dementia
     Route: 065
  10. VENLAFAXINE [Suspect]
     Active Substance: VENLAFAXINE HYDROCHLORIDE
     Indication: Dementia
     Route: 065

REACTIONS (1)
  - Delirium [Unknown]
